FAERS Safety Report 6672146-9 (Version None)
Quarter: 2010Q2

REPORT INFORMATION
  Report Type: 
  Country: None (occurrence: None)
  Receive Date: 20100407
  Receipt Date: 20100407
  Transmission Date: 20101027
  Serious: Yes (Death)
  Sender: FDA-Public Use
  Company Number: None

PATIENT
  Sex: Male

DRUGS (1)
  1. GAMUNEX [Suspect]
     Indication: HEART TRANSPLANT
     Dosage: 20G ONCE A DAY
     Dates: start: 20080204, end: 20080206

REACTIONS (5)
  - ANGINA PECTORIS [None]
  - HEADACHE [None]
  - NAUSEA [None]
  - NECK PAIN [None]
  - RENAL FAILURE ACUTE [None]
